FAERS Safety Report 11462292 (Version 1)
Quarter: 2015Q3

REPORT INFORMATION
  Report Type: Spontaneous
  Country: US (occurrence: US)
  Receive Date: 20150831
  Receipt Date: 20150831
  Transmission Date: 20151125
  Serious: No
  Sender: FDA-Public Use
  Company Number: US-ELI_LILLY_AND_COMPANY-US201009001393

PATIENT
  Age: 38 Year
  Sex: Female
  Weight: 102.49 kg

DRUGS (4)
  1. CYMBALTA [Suspect]
     Active Substance: DULOXETINE HYDROCHLORIDE
     Indication: ANXIETY
     Dosage: 60 MG, DAILY (1/D)
     Route: 048
  2. LORTAB [Concomitant]
     Active Substance: ACETAMINOPHEN\HYDROCODONE BITARTRATE
     Dosage: 7.5 D/F, AS NEEDED
     Route: 048
  3. BACLOFEN. [Concomitant]
     Active Substance: BACLOFEN
     Dosage: 20 MG, 2/D
     Route: 048
  4. BUSPAR [Concomitant]
     Active Substance: BUSPIRONE HYDROCHLORIDE
     Dosage: 15 MG, DAILY (1/D)
     Route: 048

REACTIONS (1)
  - Alopecia [Not Recovered/Not Resolved]
